FAERS Safety Report 8406809-1 (Version None)
Quarter: 2012Q2

REPORT INFORMATION
  Report Type: 
  Country: None (occurrence: None)
  Receive Date: 20120529
  Receipt Date: 19941128
  Transmission Date: 20120825
  Serious: Yes (Death, Other)
  Sender: FDA-Public Use
  Company Number: 002225

PATIENT
  Age: 79 Year
  Sex: Male

DRUGS (5)
  1. PLETAL [Suspect]
     Dosage: 200 MG, DAILY DOSE, ORAL
     Route: 048
     Dates: start: 19941109, end: 19941124
  2. D-CHLORPHENIRAMINE MALEATE (D-CHLORPHENIRAMINE MALEATE) [Concomitant]
  3. PLANTAGINIS HERBA EXTRACT (PLANTAGINIS HERBA EXTRACT) [Concomitant]
  4. SODIUM AZULENE SULFONATE_I-GLUTAMINE (SODIUM AZULENE SULFONATE_I-GLUTA [Concomitant]
  5. NON-PYRINE COLD PREPARATION (NON-PYRINE COLD PREPARATION) [Concomitant]

REACTIONS (8)
  - ACIDOSIS [None]
  - HYPOTENSION [None]
  - ELECTROCARDIOGRAM QT PROLONGED [None]
  - ELECTROCARDIOGRAM P PULMONALE [None]
  - SUBDURAL EFFUSION [None]
  - ALTERED STATE OF CONSCIOUSNESS [None]
  - SHOCK [None]
  - HYPERAMMONAEMIA [None]
